FAERS Safety Report 5433565-1 (Version None)
Quarter: 2007Q3

REPORT INFORMATION
  Report Type: 
  Country: None (occurrence: None)
  Receive Date: 20070831
  Receipt Date: 20070724
  Transmission Date: 20080115
  Serious: No
  Sender: FDA-Public Use
  Company Number: A0665719A

PATIENT
  Age: 62 Year
  Sex: Male

DRUGS (1)
  1. ALLI [Suspect]
     Dates: start: 20070620, end: 20070625

REACTIONS (2)
  - FREQUENT BOWEL MOVEMENTS [None]
  - MUSCLE SPASMS [None]
